FAERS Safety Report 8834510 (Version 6)
Quarter: 2014Q1

REPORT INFORMATION
  Report Type: Report from Study
  Country: FR (occurrence: FR)
  Receive Date: 20121010
  Receipt Date: 20140102
  Transmission Date: 20141002
  Serious: Yes (Death)
  Sender: FDA-Public Use
  Company Number: FR-ROCHE-1142150

PATIENT
  Age: 55 Year
  Sex: Female
  Weight: 65 kg

DRUGS (10)
  1. VISMODEGIB [Suspect]
     Indication: HEAD AND NECK CANCER
     Route: 048
     Dates: start: 20111205
  2. LEVOTHYROX [Concomitant]
     Indication: HYPOTHYROIDISM
     Route: 065
  3. MYOLASTAN [Concomitant]
     Indication: MUSCLE SPASMS
     Route: 065
     Dates: start: 20120327
  4. LYSANXIA [Concomitant]
     Indication: DEPRESSION
     Route: 065
  5. ZOLOFT [Concomitant]
     Indication: DEPRESSION
     Route: 065
  6. PARIET [Concomitant]
     Indication: GASTRITIS
     Route: 065
  7. STILNOX [Concomitant]
     Indication: PROPHYLAXIS
     Route: 065
  8. LINDILANE [Concomitant]
     Indication: HEADACHE
     Route: 065
     Dates: end: 20120421
  9. AUGMENTIN [Concomitant]
     Indication: BRONCHITIS
     Route: 065
     Dates: start: 20120820, end: 20120830
  10. MAGNE B6 (FRANCE) [Concomitant]
     Indication: MUSCLE SPASMS
     Dosage: 6 CAPS/DAY
     Route: 065
     Dates: start: 20120105

REACTIONS (1)
  - Myocardial infarction [Fatal]
